FAERS Safety Report 18415348 (Version 3)
Quarter: 2024Q2

REPORT INFORMATION
  Report Type: Report from Study
  Country: CA (occurrence: CA)
  Receive Date: 20201022
  Receipt Date: 20240626
  Transmission Date: 20240716
  Serious: Yes (Other)
  Sender: FDA-Public Use
  Company Number: CA-GLAXOSMITHKLINE-CA2020AMR060774

PATIENT

DRUGS (5)
  1. MEPOLIZUMAB [Suspect]
     Active Substance: MEPOLIZUMAB
     Indication: Asthma
     Dosage: 100 MG, MO
     Route: 042
     Dates: start: 20170411
  2. MEPOLIZUMAB [Suspect]
     Active Substance: MEPOLIZUMAB
     Dosage: 100 MG, MO
     Route: 042
     Dates: start: 20200310
  3. MEPOLIZUMAB [Suspect]
     Active Substance: MEPOLIZUMAB
     Dosage: 100 MG, MO
     Route: 042
     Dates: start: 20200406
  4. VENTOLIN [Suspect]
     Active Substance: ALBUTEROL SULFATE
     Dosage: UNK
  5. SYMBICORT [Suspect]
     Active Substance: BUDESONIDE\FORMOTEROL FUMARATE DIHYDRATE
     Indication: Wheezing
     Dosage: 3 PUFF(S), BID

REACTIONS (11)
  - Asthma [Recovering/Resolving]
  - Hypersensitivity [Recovering/Resolving]
  - Wheezing [Recovering/Resolving]
  - Obstructive airways disorder [Recovering/Resolving]
  - Sleep disorder due to a general medical condition [Recovering/Resolving]
  - Loss of personal independence in daily activities [Recovering/Resolving]
  - Dyspnoea [Recovering/Resolving]
  - Gastrooesophageal reflux disease [Recovering/Resolving]
  - Total lung capacity decreased [Recovering/Resolving]
  - Condition aggravated [Recovering/Resolving]
  - Drug ineffective [Unknown]
